FAERS Safety Report 23078485 (Version 4)
Quarter: 2024Q1

REPORT INFORMATION
  Report Type: Spontaneous
  Country: US (occurrence: US)
  Receive Date: 20231018
  Receipt Date: 20240102
  Transmission Date: 20240410
  Serious: Yes (Other)
  Sender: FDA-Public Use
  Company Number: US-BRISTOL-MYERS SQUIBB COMPANY-2023-147328

PATIENT
  Age: 67 Year
  Sex: Male

DRUGS (1)
  1. LENALIDOMIDE [Suspect]
     Active Substance: LENALIDOMIDE
     Indication: Product used for unknown indication
     Dosage: TAKE 1 CAPSULE (25MG) BY MOUTH EVERY DAY ON DAYS 1-14 EVERY 21 DAYS
     Route: 048
     Dates: start: 20231010

REACTIONS (9)
  - Gout [Unknown]
  - Bone pain [Unknown]
  - Hypertension [Unknown]
  - Diabetes mellitus [Recovered/Resolved]
  - Weight decreased [Unknown]
  - Off label use [Unknown]
  - Tremor [Recovered/Resolved]
  - Product availability issue [Unknown]
  - Platelet count decreased [Unknown]
